FAERS Safety Report 11004946 (Version 2)
Quarter: 2015Q2

REPORT INFORMATION
  Report Type: Spontaneous
  Country: PL (occurrence: PL)
  Receive Date: 20150409
  Receipt Date: 20150427
  Transmission Date: 20150821
  Serious: Yes (Death)
  Sender: FDA-Public Use
  Company Number: PHHY2015PL041965

PATIENT
  Sex: Male

DRUGS (6)
  1. GLIVEC [Suspect]
     Active Substance: IMATINIB MESYLATE
     Indication: CHRONIC MYELOID LEUKAEMIA
     Dosage: 300 MG/M2, QD
     Route: 048
     Dates: start: 20090615, end: 20100926
  2. GLIVEC [Suspect]
     Active Substance: IMATINIB MESYLATE
     Dosage: 500 MG/M2, QD
     Route: 048
     Dates: start: 20101122
  3. HYDROXYUREA. [Concomitant]
     Active Substance: HYDROXYUREA
     Indication: PRODUCT USED FOR UNKNOWN INDICATION
     Route: 065
     Dates: start: 20090519, end: 20090603
  4. GLIVEC [Suspect]
     Active Substance: IMATINIB MESYLATE
     Dosage: 350 MG/M2, QD
     Route: 048
     Dates: start: 20101029, end: 20101102
  5. GLIVEC [Suspect]
     Active Substance: IMATINIB MESYLATE
     Dosage: 400 MG/M2, QD
     Route: 048
     Dates: start: 20101103, end: 20101121
  6. HYDROXYUREA. [Concomitant]
     Active Substance: HYDROXYUREA
     Dosage: UNK
     Route: 065
     Dates: start: 20101222, end: 20110317

REACTIONS (3)
  - No therapeutic response [Unknown]
  - Drug resistance [Unknown]
  - Complications of transplant surgery [Fatal]

NARRATIVE: CASE EVENT DATE: 201103
